FAERS Safety Report 8085198-9 (Version None)
Quarter: 2012Q1

REPORT INFORMATION
  Report Type: 
  Country: None (occurrence: None)
  Receive Date: 20120128
  Receipt Date: 20110328
  Transmission Date: 20120608
  Serious: No
  Sender: FDA-Public Use
  Company Number: US-ABBOTT-11P-163-0714906-00

PATIENT
  Age: 53 Year
  Sex: Female

DRUGS (10)
  1. INDERAL LA [Concomitant]
     Indication: BLOOD PRESSURE
  2. LORTAB [Concomitant]
     Indication: PAIN
     Dosage: 10/325
  3. BC [Concomitant]
     Indication: PAIN
  4. FOLIC ACID [Concomitant]
     Indication: VITAMIN SUPPLEMENTATION
  5. OXYCODONE HCL [Concomitant]
     Indication: PAIN
  6. HUMIRA [Suspect]
     Indication: ANKYLOSING SPONDYLITIS
     Dates: start: 20090401
  7. METHOTREXATE [Suspect]
     Indication: ANKYLOSING SPONDYLITIS
     Dosage: 15MG/1CC EVERY WEEK
  8. METHOTREXATE [Concomitant]
     Dosage: 1CC WEEKLY
     Route: 050
  9. FEMHART [Concomitant]
     Indication: HORMONE REPLACEMENT THERAPY
     Dosage: 1MG/5
  10. CLONAZEPAM [Concomitant]
     Indication: PRODUCT USED FOR UNKNOWN INDICATION
     Dosage: 1/2MG 4 AT BEDTIME

REACTIONS (10)
  - FATIGUE [None]
  - INJECTION SITE PAIN [None]
  - MOBILITY DECREASED [None]
  - OROPHARYNGEAL PAIN [None]
  - IRITIS [None]
  - NODULE [None]
  - PAIN [None]
  - INFLUENZA LIKE ILLNESS [None]
  - PYREXIA [None]
  - MACRODACTYLY [None]
